FAERS Safety Report 9130788 (Version 1)
Quarter: 2013Q1

REPORT INFORMATION
  Report Type: Spontaneous
  Country: GB (occurrence: GB)
  Receive Date: 20130301
  Receipt Date: 20130301
  Transmission Date: 20140127
  Serious: Yes (Other)
  Sender: FDA-Public Use
  Company Number: GB-JNJFOC-20130214079

PATIENT
  Age: 52 Year
  Sex: Male

DRUGS (1)
  1. SIMPONI [Suspect]
     Indication: ANKYLOSING SPONDYLITIS
     Dosage: START DATE: AUG (YEAR UNSPECIFIED).??STOP DATE: DEC (YEAR UNSPECIFIED)
     Route: 058

REACTIONS (1)
  - Toxic skin eruption [Unknown]
